FAERS Safety Report 8595788-2 (Version None)
Quarter: 2012Q3

REPORT INFORMATION
  Report Type: 
  Country: None (occurrence: None)
  Receive Date: 20120815
  Receipt Date: 20120802
  Transmission Date: 20120928
  Serious: Yes (Death, Disabling)
  Sender: FDA-Public Use
  Company Number: JP-ROCHE-1093354

PATIENT
  Sex: Male

DRUGS (9)
  1. PROTAMINE SULFATE [Concomitant]
     Route: 042
     Dates: start: 20110419, end: 20110419
  2. PHENYTOIN SODIUM CAP [Concomitant]
     Route: 042
     Dates: start: 20110418, end: 20110422
  3. ASPIRIN [Suspect]
     Indication: CEREBRAL INFARCTION
     Route: 048
     Dates: start: 20110418, end: 20110418
  4. PLAVIX [Suspect]
     Indication: CEREBRAL INFARCTION
     Route: 048
     Dates: start: 20110418, end: 20110418
  5. RADICUT [Concomitant]
     Dates: start: 20110418, end: 20110502
  6. NICARDIPINE HCL [Concomitant]
     Route: 042
     Dates: start: 20110418, end: 20110418
  7. ALTEPLASE [Suspect]
     Indication: CEREBRAL INFARCTION
     Dates: start: 20110418, end: 20110418
  8. AMPICILLIN SODIUM [Concomitant]
     Dates: start: 20110423, end: 20110426
  9. HEPARIN SODIUM [Suspect]
     Indication: CEREBRAL INFARCTION
     Dates: start: 20110418, end: 20110418

REACTIONS (3)
  - DEATH [None]
  - SUBARACHNOID HAEMORRHAGE [None]
  - CEREBRAL HAEMORRHAGE [None]
